FAERS Safety Report 7403275-X (Version None)
Quarter: 2011Q2

REPORT INFORMATION
  Report Type: 
  Country: None (occurrence: None)
  Receive Date: 20110408
  Receipt Date: 20110324
  Transmission Date: 20111010
  Serious: Yes (Other)
  Sender: FDA-Public Use
  Company Number: JP-BAYER-2011-023059

PATIENT
  Age: 78 Year
  Sex: Male

DRUGS (5)
  1. ASPIRIN [Suspect]
     Indication: MYOCARDIAL INFARCTION
     Dosage: UNK
     Route: 048
  2. LIPITOR [Suspect]
     Route: 048
  3. SIGMART [Suspect]
     Route: 048
  4. LASIX [Suspect]
     Route: 048
  5. ALDACTONE [Suspect]
     Route: 048

REACTIONS (1)
  - PLATELET COUNT DECREASED [None]
